FAERS Safety Report 11524618 (Version 1)
Quarter: 2015Q3

REPORT INFORMATION
  Report Type: Spontaneous
  Country: US (occurrence: US)
  Receive Date: 20150918
  Receipt Date: 20150918
  Transmission Date: 20151125
  Serious: No
  Sender: FDA-Public Use
  Company Number: US-ROCHE-735998

PATIENT
  Age: 40 Year
  Sex: Female

DRUGS (2)
  1. PEGASYS [Suspect]
     Active Substance: PEGINTERFERON ALFA-2A
     Indication: HEPATITIS C
     Dosage: FORM: PRE-FILLED SYRINGE
     Route: 058
  2. COPEGUS [Suspect]
     Active Substance: RIBAVIRIN
     Indication: HEPATITIS C
     Dosage: DIVIDED DOSES
     Route: 048

REACTIONS (15)
  - Palpitations [Unknown]
  - Fatigue [Unknown]
  - Dyspnoea [Unknown]
  - Food craving [Not Recovered/Not Resolved]
  - Oropharyngeal discomfort [Unknown]
  - Chills [Unknown]
  - Puncture site haemorrhage [Unknown]
  - Muscle tightness [Unknown]
  - Pain [Unknown]
  - Hypersensitivity [Not Recovered/Not Resolved]
  - Insomnia [Unknown]
  - Facial spasm [Unknown]
  - Muscular weakness [Unknown]
  - Restless legs syndrome [Not Recovered/Not Resolved]
  - Cervix disorder [Unknown]

NARRATIVE: CASE EVENT DATE: 20101008
